FAERS Safety Report 12252041 (Version 1)
Quarter: 2016Q2

REPORT INFORMATION
  Report Type: Spontaneous
  Country: FR (occurrence: FR)
  Receive Date: 20160411
  Receipt Date: 20160411
  Transmission Date: 20160815
  Serious: Yes (Hospitalization)
  Sender: FDA-Public Use
  Company Number: FR-009507513-1604FRA004525

PATIENT
  Age: 29 Year
  Sex: Female

DRUGS (6)
  1. DAPTOMYCIN. [Suspect]
     Active Substance: DAPTOMYCIN
     Indication: STAPHYLOCOCCAL SEPSIS
     Dosage: 480 MG, QD
     Route: 042
     Dates: start: 20160302, end: 20160310
  2. BACTRIM [Suspect]
     Active Substance: SULFAMETHOXAZOLE\TRIMETHOPRIM
     Indication: STAPHYLOCOCCAL SEPSIS
     Dosage: 1 DF, BID
     Route: 048
     Dates: start: 20160304, end: 20160304
  3. OMEPRAZOLE. [Concomitant]
     Active Substance: OMEPRAZOLE
  4. DEROXAT [Concomitant]
     Active Substance: PAROXETINE HYDROCHLORIDE
  5. LOXAPAC (LOXAPINE SUCCINATE) [Concomitant]
     Active Substance: LOXAPINE SUCCINATE
  6. LEVOTHYROX [Concomitant]
     Active Substance: LEVOTHYROXINE

REACTIONS (3)
  - Encephalopathy [Recovered/Resolved]
  - Memory impairment [Recovered/Resolved]
  - Epilepsy [Recovered/Resolved]

NARRATIVE: CASE EVENT DATE: 201603
